FAERS Safety Report 17654658 (Version 1)
Quarter: 2020Q2

REPORT INFORMATION
  Report Type: Spontaneous
  Country: US (occurrence: US)
  Receive Date: 20200409
  Receipt Date: 20200409
  Transmission Date: 20200713
  Serious: No
  Sender: FDA-Public Use
  Company Number: None

PATIENT
  Age: 71 Year
  Sex: Male
  Weight: 97.52 kg

DRUGS (1)
  1. SACUBITRIL/VALSARTAN (SACUBITRIL 49MG/VALSARTAN 51MG TAB) [Suspect]
     Active Substance: SACUBITRIL\VALSARTAN
     Indication: CARDIAC FAILURE CONGESTIVE
     Dates: start: 20200122, end: 20200203

REACTIONS (4)
  - Adverse drug reaction [None]
  - Abdominal distension [None]
  - Eructation [None]
  - Flatulence [None]

NARRATIVE: CASE EVENT DATE: 20200203
